FAERS Safety Report 5460596-8 (Version None)
Quarter: 2007Q3

REPORT INFORMATION
  Report Type: 
  Country: None (occurrence: None)
  Receive Date: 20070919
  Receipt Date: 20070907
  Transmission Date: 20080115
  Serious: Yes (Other)
  Sender: FDA-Public Use
  Company Number: US-PFIZER INC-2007075157

PATIENT

DRUGS (1)
  1. LYRICA [Suspect]
     Indication: NEUROPATHY

REACTIONS (1)
  - GRAND MAL CONVULSION [None]
